FAERS Safety Report 9031166 (Version 1)
Quarter: 2013Q1

REPORT INFORMATION
  Report Type: Spontaneous
  Country: BR (occurrence: BR)
  Receive Date: 20130123
  Receipt Date: 20130123
  Transmission Date: 20140127
  Serious: Yes (Other)
  Sender: FDA-Public Use
  Company Number: BR-AMGEN-BRACT2011026745

PATIENT
  Age: 55 Year
  Sex: Male
  Weight: 70 kg

DRUGS (10)
  1. ENBREL [Suspect]
     Indication: ANKYLOSING SPONDYLITIS
     Dosage: 50 MG, QWK
     Dates: start: 20090410, end: 20101217
  2. ENBREL [Suspect]
     Dosage: 50 MG, ONCE WEEKLY
     Route: 058
     Dates: start: 200909, end: 201008
  3. ANCORON [Concomitant]
     Dosage: UNK
     Route: 048
  4. LOSARTAN [Concomitant]
     Dosage: 1 TABLET (50 MG), 1X/DAY
     Route: 048
  5. CARVEDILOL [Concomitant]
     Dosage: UNK
     Route: 048
  6. MAREVAN [Concomitant]
     Dosage: UNK
     Route: 048
  7. PRADAXA [Concomitant]
     Dosage: 2 TABLETS (110 MG EACH) A DAY,
     Route: 048
  8. OMEPRAZOL                          /00661201/ [Concomitant]
     Dosage: 1 TABLET (20 MG), 1X/DAY
     Route: 048
  9. FUROSEMIDE [Concomitant]
     Dosage: 1 TABLET (40 MG), 1X/DAY
     Route: 048
  10. ALDACTONE                          /00006201/ [Concomitant]
     Dosage: 1 TABLET (25 MG), 1X/DAY
     Route: 048

REACTIONS (8)
  - Drug administration error [Unknown]
  - Injection site erythema [Unknown]
  - Injection site swelling [Unknown]
  - Atrial fibrillation [Unknown]
  - Weight decreased [Unknown]
  - Cough [Unknown]
  - Spinal pain [Unknown]
  - Pain [Unknown]
